FAERS Safety Report 9959813 (Version 1)
Quarter: 2014Q1

REPORT INFORMATION
  Report Type: Spontaneous
  Country: US (occurrence: None)
  Receive Date: 20140228
  Receipt Date: 20140228
  Transmission Date: 20141002
  Serious: No
  Sender: FDA-Public Use
  Company Number: None

PATIENT
  Age: 60 Year
  Sex: Female
  Weight: 64.2 kg

DRUGS (2)
  1. BEVACIZUMAB(RHUMAB VEGF) [Suspect]
     Indication: NON-SMALL CELL LUNG CANCER
  2. PEMETREXED(ALIMTA; LY231514) [Suspect]
     Indication: NON-SMALL CELL LUNG CANCER

REACTIONS (5)
  - Dyspnoea [None]
  - Chest pain [None]
  - Chest discomfort [None]
  - Oxygen saturation decreased [None]
  - Heart rate increased [None]
